FAERS Safety Report 14102231 (Version 1)
Quarter: 2017Q4

REPORT INFORMATION
  Report Type: Spontaneous
  Country: GB (occurrence: GB)
  Receive Date: 20171018
  Receipt Date: 20171018
  Transmission Date: 20180321
  Serious: Yes (Disabling)
  Sender: FDA-Public Use
  Company Number: GB-BAYER-2017-191127

PATIENT
  Age: 23 Year
  Sex: Male
  Weight: 67 kg

DRUGS (2)
  1. CIPROXIN [Suspect]
     Active Substance: CIPROFLOXACIN
     Indication: BACTERIAL PROSTATITIS
     Dosage: 200 MG, BID
     Route: 048
     Dates: start: 20160501, end: 20160529
  2. AMITRIPTYLINE [Concomitant]
     Active Substance: AMITRIPTYLINE
     Dosage: UNK

REACTIONS (8)
  - Burning sensation [Unknown]
  - Neuralgia [Recovering/Resolving]
  - Tendonitis [Recovering/Resolving]
  - Paraesthesia [Unknown]
  - Abdominal discomfort [Recovering/Resolving]
  - Formication [Unknown]
  - Joint crepitation [Unknown]
  - Dyspepsia [Recovering/Resolving]

NARRATIVE: CASE EVENT DATE: 20160723
